FAERS Safety Report 20772066 (Version 1)
Quarter: 2022Q2

REPORT INFORMATION
  Report Type: Spontaneous
  Country: CN (occurrence: CN)
  Receive Date: 20220501
  Receipt Date: 20220501
  Transmission Date: 20220721
  Serious: Yes (Disabling)
  Sender: FDA-Public Use
  Company Number: CN-BAXTER-2022BAX009354

PATIENT
  Age: 40 Year
  Sex: Male
  Weight: 65 kg

DRUGS (6)
  1. MANNITOL [Suspect]
     Active Substance: MANNITOL
     Indication: Cerebral haemorrhage
     Route: 041
     Dates: start: 20220412, end: 20220419
  2. MANNITOL [Suspect]
     Active Substance: MANNITOL
     Indication: Reduction of increased intracranial pressure
  3. MANNITOL [Suspect]
     Active Substance: MANNITOL
     Indication: Diuretic therapy
  4. MANNITOL [Suspect]
     Active Substance: MANNITOL
     Indication: Brain oedema
  5. FUROSEMIDE [Suspect]
     Active Substance: FUROSEMIDE
     Indication: Polyuria
     Dosage: INTRA-PUMP INJECTION
     Route: 050
     Dates: start: 20220419, end: 20220421
  6. SODIUM CHLORIDE [Suspect]
     Active Substance: SODIUM CHLORIDE
     Indication: Medication dilution
     Dosage: INTRA-PUMP INJECTION
     Route: 050
     Dates: start: 20220419, end: 20220421

REACTIONS (1)
  - Renal impairment [Recovering/Resolving]

NARRATIVE: CASE EVENT DATE: 20220419
